FAERS Safety Report 6491325-7 (Version None)
Quarter: 2009Q4

REPORT INFORMATION
  Report Type: 
  Country: None (occurrence: None)
  Receive Date: 20091211
  Receipt Date: 20091203
  Transmission Date: 20100525
  Serious: Yes (Other)
  Sender: FDA-Public Use
  Company Number: US-PFIZER INC-2008022474

PATIENT
  Sex: Female
  Weight: 60 kg

DRUGS (1)
  1. CHANTIX [Suspect]
     Indication: SMOKING CESSATION THERAPY
     Dosage: 0.5 MG, 2X/DAY
     Route: 048
     Dates: start: 20080229, end: 20080306

REACTIONS (7)
  - DERMATITIS [None]
  - ERYTHEMA [None]
  - HEPATIC LESION [None]
  - MOOD ALTERED [None]
  - NEOPLASM MALIGNANT [None]
  - PRURITUS [None]
  - RASH [None]
